FAERS Safety Report 17134105 (Version 5)
Quarter: 2020Q1

REPORT INFORMATION
  Report Type: Report from Study
  Country: None (occurrence: GB)
  Receive Date: 20191210
  Receipt Date: 20200123
  Transmission Date: 20200409
  Serious: Yes (Death, Hospitalization)
  Sender: FDA-Public Use
  Company Number: GB-ABBVIE-19K-167-3184532-00

PATIENT
  Age: 69 Year
  Sex: Male

DRUGS (2)
  1. DUODOPA [Suspect]
     Active Substance: CARBIDOPA\LEVODOPA
     Indication: PARKINSON^S DISEASE
     Dosage: 5MG/1ML?20MG/1ML?100ML CASSETTE?DAILY
     Route: 050
  2. CO-CARELDOPA [Concomitant]
     Active Substance: CARBIDOPA\LEVODOPA
     Indication: PRODUCT USED FOR UNKNOWN INDICATION
     Dosage: DISPERSIBLE
     Route: 050

REACTIONS (6)
  - Cardiac arrest [Unknown]
  - Malaise [Unknown]
  - Myocardial infarction [Fatal]
  - Device colour issue [Unknown]
  - Device occlusion [Not Recovered/Not Resolved]
  - Device issue [Not Recovered/Not Resolved]

NARRATIVE: CASE EVENT DATE: 201912
